FAERS Safety Report 5911740-7 (Version None)
Quarter: 2008Q4

REPORT INFORMATION
  Report Type: 
  Country: None (occurrence: None)
  Receive Date: 20081003
  Receipt Date: 20080922
  Transmission Date: 20090506
  Serious: Yes (Hospitalization)
  Sender: FDA-Public Use
  Company Number: 2008AP002343

PATIENT
  Age: 81 Year
  Sex: Male

DRUGS (9)
  1. AMLODIPINE BESYLATE [Suspect]
  2. ATENOLOL [Suspect]
  3. LISINOPRIL [Suspect]
  4. OLMESARTAN MEDOXOMIL [Suspect]
     Dosage: PO
     Route: 048
  5. OMEPRAZOLE [Suspect]
     Dosage: 40 MG;QD
  6. ASPIRIN [Suspect]
  7. ATORVASTATIN CALCIUM [Suspect]
  8. QUININE (QUININE) [Suspect]
  9. ISOSORBIDE MONONITRATE [Suspect]

REACTIONS (18)
  - ATRIAL FLUTTER [None]
  - BALANCE DISORDER [None]
  - BRADYCARDIA [None]
  - CONDUCTION DISORDER [None]
  - DIZZINESS [None]
  - FALL [None]
  - HEART RATE IRREGULAR [None]
  - HYPOCALCAEMIA [None]
  - HYPOKALAEMIA [None]
  - HYPOMAGNESAEMIA [None]
  - HYPOTENSION [None]
  - MUSCLE SPASMS [None]
  - NAUSEA [None]
  - PARAESTHESIA [None]
  - POLYURIA [None]
  - URINARY INCONTINENCE [None]
  - URINARY TRACT INFECTION [None]
  - VOMITING [None]
